FAERS Safety Report 10680663 (Version 2)
Quarter: 2015Q4

REPORT INFORMATION
  Report Type: Spontaneous
  Country: US (occurrence: US)
  Receive Date: 20141229
  Receipt Date: 20151228
  Transmission Date: 20160304
  Serious: Yes (Hospitalization, Other)
  Sender: FDA-Public Use
  Company Number: US-SA-2014SA118922

PATIENT
  Age: 49 Year
  Sex: Female

DRUGS (27)
  1. NORVASC [Concomitant]
     Active Substance: AMLODIPINE BESYLATE
     Dosage: 5 DAILY
     Route: 048
  2. COUMADIN [Concomitant]
     Active Substance: WARFARIN SODIUM
     Route: 048
     Dates: start: 200706
  3. LOVENOX [Concomitant]
     Active Substance: ENOXAPARIN SODIUM
  4. ASPIRIN. [Concomitant]
     Active Substance: ASPIRIN
     Dates: start: 201110, end: 201206
  5. ZOCOR [Concomitant]
     Active Substance: SIMVASTATIN
     Route: 048
  6. PRAVACHOL [Concomitant]
     Active Substance: PRAVASTATIN SODIUM
     Route: 048
  7. ZETIA [Concomitant]
     Active Substance: EZETIMIBE
     Route: 048
  8. DIOVAN [Concomitant]
     Active Substance: VALSARTAN
     Route: 048
  9. TOPAMAX [Concomitant]
     Active Substance: TOPIRAMATE
     Route: 048
  10. TOPROL XL [Concomitant]
     Active Substance: METOPROLOL SUCCINATE
  11. PLAVIX [Suspect]
     Active Substance: CLOPIDOGREL BISULFATE
     Indication: STENT PLACEMENT
     Route: 048
     Dates: start: 20060111, end: 20130301
  12. PLAVIX [Suspect]
     Active Substance: CLOPIDOGREL BISULFATE
     Indication: TRANSIENT ISCHAEMIC ATTACK
     Route: 048
     Dates: start: 20060111, end: 20130301
  13. ZANAFLEX [Concomitant]
     Active Substance: TIZANIDINE HYDROCHLORIDE
     Route: 048
  14. NITROGLYCERINE [Concomitant]
     Active Substance: NITROGLYCERIN
     Route: 060
  15. VITAMIN E [Concomitant]
     Active Substance: .ALPHA.-TOCOPHEROL
  16. ASPIRIN. [Concomitant]
     Active Substance: ASPIRIN
     Dates: start: 200710, end: 200801
  17. FISH OIL [Concomitant]
     Active Substance: FISH OIL
  18. MAGNESIUM/CALCIUM [Concomitant]
  19. PLAVIX [Suspect]
     Active Substance: CLOPIDOGREL BISULFATE
     Indication: CEREBROVASCULAR ACCIDENT
     Route: 048
     Dates: start: 20060111, end: 20130301
  20. LOPRESSOR [Concomitant]
     Active Substance: METOPROLOL TARTRATE
     Route: 048
  21. ASPIRIN. [Concomitant]
     Active Substance: ASPIRIN
     Dates: start: 200708, end: 200710
  22. WELLBUTRIN [Concomitant]
     Active Substance: BUPROPION HYDROCHLORIDE
     Dosage: EXTENDED RELEASE 3 PO QD
     Route: 048
  23. NIASPAN [Concomitant]
     Active Substance: NIACIN
  24. VYTORIN [Concomitant]
     Active Substance: EZETIMIBE\SIMVASTATIN
  25. ASPIRIN. [Concomitant]
     Active Substance: ASPIRIN
     Dosage: 325MG CAPLET
     Route: 048
     Dates: start: 2002, end: 2007
  26. ASPIRIN. [Concomitant]
     Active Substance: ASPIRIN
     Dates: start: 201207
  27. TIZANIDINE HYDROCHLORIDE. [Concomitant]
     Active Substance: TIZANIDINE HYDROCHLORIDE
     Route: 048

REACTIONS (3)
  - Thrombotic thrombocytopenic purpura [Unknown]
  - Gastrointestinal haemorrhage [Unknown]
  - Rectal haemorrhage [Unknown]
